FAERS Safety Report 8183189-0 (Version None)
Quarter: 2012Q1

REPORT INFORMATION
  Report Type: 
  Country: None (occurrence: None)
  Receive Date: 20120305
  Receipt Date: 20120227
  Transmission Date: 20120608
  Serious: Yes (Hospitalization)
  Sender: FDA-Public Use
  Company Number: US-TEVA-325041USA

PATIENT
  Age: 7 Year
  Sex: Male

DRUGS (1)
  1. DILTIAZEM HCL [Suspect]
     Indication: ACCIDENTAL EXPOSURE
     Route: 048

REACTIONS (11)
  - BRADYCARDIA [None]
  - HYPERGLYCAEMIA [None]
  - VOMITING [None]
  - OLIGURIA [None]
  - MULTI-ORGAN DISORDER [None]
  - MENTAL DISORDER [None]
  - ACCIDENTAL DRUG INTAKE BY CHILD [None]
  - HYPOTENSION [None]
  - CONVULSION [None]
  - METABOLIC ACIDOSIS [None]
  - RENAL FAILURE ACUTE [None]
